FAERS Safety Report 6046324-6 (Version None)
Quarter: 2009Q1

REPORT INFORMATION
  Report Type: 
  Country: None (occurrence: None)
  Receive Date: 20090121
  Receipt Date: 20090121
  Transmission Date: 20090719
  Serious: Yes (Hospitalization)
  Sender: FDA-Public Use
  Company Number: None

PATIENT
  Age: 41 Year
  Sex: Male
  Weight: 102.9665 kg

DRUGS (2)
  1. CRESTOR [Suspect]
     Indication: BLOOD CHOLESTEROL INCREASED
     Dosage: 10MG 1 TIME DAILY PO
     Route: 048
     Dates: start: 20060901, end: 20081231
  2. CRESTOR [Suspect]
     Indication: DIABETES MELLITUS
     Dosage: 10MG 1 TIME DAILY PO
     Route: 048
     Dates: start: 20060901, end: 20081231

REACTIONS (1)
  - RHABDOMYOLYSIS [None]
